FAERS Safety Report 9515128 (Version 2)
Quarter: 2013Q3

REPORT INFORMATION
  Report Type: Spontaneous
  Country: ES (occurrence: ES)
  Receive Date: 20130911
  Receipt Date: 20130919
  Transmission Date: 20140515
  Serious: Yes (Death)
  Sender: FDA-Public Use
  Company Number: ES-JNJFOC-20130903850

PATIENT
  Age: 65 Year
  Sex: Male
  Weight: 74 kg

DRUGS (8)
  1. STELARA [Suspect]
     Indication: PSORIASIS
     Dosage: 3 YEARS AGO
     Route: 058
     Dates: start: 20100709
  2. ADIRO [Concomitant]
     Route: 065
  3. COROPRES [Concomitant]
     Route: 065
  4. LISINOPRIL [Concomitant]
     Route: 065
  5. LANSOPRAZOL [Concomitant]
     Route: 065
  6. ATORVASTATINA [Concomitant]
     Route: 065
  7. VERNIES [Concomitant]
     Route: 065
  8. SEGURIL [Concomitant]
     Route: 065

REACTIONS (1)
  - Hepatocellular carcinoma [Fatal]
